FAERS Safety Report 24223157 (Version 1)
Quarter: 2024Q3

REPORT INFORMATION
  Report Type: Spontaneous
  Country: IT (occurrence: IT)
  Receive Date: 20240819
  Receipt Date: 20240819
  Transmission Date: 20241017
  Serious: Yes (Hospitalization, Other)
  Sender: MYLAN
  Company Number: IT-SA-BI2014BI60715GD

PATIENT
  Age: 33 Month
  Sex: Female

DRUGS (2)
  1. IBUPROFEN [Suspect]
     Active Substance: IBUPROFEN
     Indication: Pyrexia
     Dosage: DOSE DESCRIPTION : UNK UNK,UNK
     Route: 065
  2. ACETAMINOPHEN [Suspect]
     Active Substance: ACETAMINOPHEN
     Indication: Pyrexia
     Dosage: DOSE DESCRIPTION : UNK UNK,UNK
     Route: 065

REACTIONS (5)
  - Anorectal disorder [Recovered/Resolved]
  - Oral disorder [Recovered/Resolved]
  - Stevens-Johnson syndrome [Recovered/Resolved]
  - Product administered to patient of inappropriate age [Unknown]
  - Off label use [Unknown]
